FAERS Safety Report 21047675 (Version 1)
Quarter: 2022Q3

REPORT INFORMATION
  Report Type: Spontaneous
  Country: CN (occurrence: CN)
  Receive Date: 20220706
  Receipt Date: 20220706
  Transmission Date: 20221027
  Serious: Yes (Hospitalization, Other)
  Sender: FDA-Public Use
  Company Number: None

PATIENT
  Age: 39 Year
  Sex: Female
  Weight: 52 kg

DRUGS (12)
  1. CYCLOPHOSPHAMIDE [Suspect]
     Active Substance: CYCLOPHOSPHAMIDE
     Indication: Breast cancer recurrent
     Dosage: 920 MG, QD, 0.92 G,  CYCLOPHOSPHAMIDE FOR INJECTION (0.92G) DILUTED WITH 0.9% SODIUM CHLORIDE INJECT
     Route: 041
     Dates: start: 20220615, end: 20220615
  2. CYCLOPHOSPHAMIDE [Suspect]
     Active Substance: CYCLOPHOSPHAMIDE
     Indication: Metastases to lymph nodes
  3. CYCLOPHOSPHAMIDE [Suspect]
     Active Substance: CYCLOPHOSPHAMIDE
     Indication: Metastases to lung
  4. CYCLOPHOSPHAMIDE [Suspect]
     Active Substance: CYCLOPHOSPHAMIDE
     Indication: Metastases to pleura
  5. CYCLOPHOSPHAMIDE [Suspect]
     Active Substance: CYCLOPHOSPHAMIDE
     Indication: Metastases to bone
  6. SODIUM CHLORIDE [Suspect]
     Active Substance: SODIUM CHLORIDE
     Indication: Medication dilution
     Dosage: 100 ML, QD, CYCLOPHOSPHAMIDE FOR INJECTION (0.92G) DILUTED WITH 0.9% SODIUM CHLORIDE INJECTION (100
     Route: 041
     Dates: start: 20220615, end: 20220615
  7. SODIUM CHLORIDE [Suspect]
     Active Substance: SODIUM CHLORIDE
     Dosage: 200 ML, QD, DOCETAXEL INJECTION (115 MG) DILUTED WITH 0.9% SODIUM CHLORIDE INJECTION (200 ML)
     Route: 041
     Dates: start: 20220615, end: 20220615
  8. DOCETAXEL [Suspect]
     Active Substance: DOCETAXEL
     Indication: Breast cancer recurrent
     Dosage: 115 MG, QD, DOCETAXEL INJECTION (115 MG) DILUTED WITH 0.9% SODIUM CHLORIDE INJECTION (200 ML)
     Route: 041
     Dates: start: 20220615, end: 20220615
  9. DOCETAXEL [Suspect]
     Active Substance: DOCETAXEL
     Indication: Metastases to lymph nodes
  10. DOCETAXEL [Suspect]
     Active Substance: DOCETAXEL
     Indication: Metastases to lung
  11. DOCETAXEL [Suspect]
     Active Substance: DOCETAXEL
     Indication: Metastases to pleura
  12. DOCETAXEL [Suspect]
     Active Substance: DOCETAXEL
     Indication: Metastases to bone

REACTIONS (2)
  - White blood cell count decreased [Recovering/Resolving]
  - Neutrophil count decreased [Recovering/Resolving]

NARRATIVE: CASE EVENT DATE: 20220623
